FAERS Safety Report 4535534-2 (Version None)
Quarter: 2004Q4

REPORT INFORMATION
  Report Type: 
  Country: None (occurrence: None)
  Receive Date: 20041214
  Receipt Date: 20040913
  Transmission Date: 20050328
  Serious: No
  Sender: FDA-Public Use
  Company Number: USA040977997

PATIENT
  Age: 67 Year
  Sex: Male
  Weight: 93 kg

DRUGS (4)
  1. CIALIS [Suspect]
     Indication: HYPOGONADISM
     Dosage: 10 MG
     Dates: start: 20040501
  2. HYZAAR [Concomitant]
  3. TESTOSTERONE [Concomitant]
  4. DALMANE [Concomitant]

REACTIONS (2)
  - DRUG INEFFECTIVE [None]
  - THERAPEUTIC RESPONSE DECREASED [None]
